FAERS Safety Report 13025817 (Version 4)
Quarter: 2017Q1

REPORT INFORMATION
  Report Type: Spontaneous
  Country: IT (occurrence: IT)
  Receive Date: 20161214
  Receipt Date: 20170125
  Transmission Date: 20170428
  Serious: Yes (Life-Threatening, Hospitalization, Other)
  Sender: FDA-Public Use
  Company Number: IT-ALVOGEN-2016-ALVOGEN-087345

PATIENT
  Age: 50 Year
  Sex: Female

DRUGS (4)
  1. HYDROCHLOROTHIAZIDE/RAMIPRIL [Concomitant]
     Indication: PRODUCT USED FOR UNKNOWN INDICATION
     Dosage: DOSE:25MG DAILY
  2. ATENOLOL. [Suspect]
     Active Substance: ATENOLOL
     Indication: HYPERTENSION
     Dosage: 50 MG DAILY
     Route: 048
  3. SPIRONOLACTONE. [Concomitant]
     Active Substance: SPIRONOLACTONE
     Indication: HYPERTENSION
  4. ATENOLOL. [Suspect]
     Active Substance: ATENOLOL
     Indication: HYPERTENSION
     Dosage: 50 MG DAILY / 100 MG BID
     Route: 048

REACTIONS (4)
  - Cardiac failure acute [Recovered/Resolved]
  - Acute myocardial infarction [Recovered/Resolved]
  - Phaeochromocytoma crisis [Recovered/Resolved]
  - Blood catecholamines decreased [Recovering/Resolving]
